FAERS Safety Report 23891260 (Version 5)
Quarter: 2025Q3

REPORT INFORMATION
  Report Type: Report from Study
  Country: CA (occurrence: CA)
  Receive Date: 20240523
  Receipt Date: 20250901
  Transmission Date: 20251020
  Serious: Yes (Other)
  Sender: BIOGEN
  Company Number: CA-BIOGEN-2023BI01219300

PATIENT
  Sex: Male

DRUGS (4)
  1. TECFIDERA [Suspect]
     Active Substance: DIMETHYL FUMARATE
     Indication: Multiple sclerosis
     Dosage: MAINTENANCE DOSE
     Route: 050
     Dates: start: 20140404, end: 202311
  2. TECFIDERA [Suspect]
     Active Substance: DIMETHYL FUMARATE
     Route: 050
     Dates: start: 20240726
  3. TECFIDERA [Suspect]
     Active Substance: DIMETHYL FUMARATE
     Route: 050
     Dates: start: 20140404
  4. CLOZARIL [Concomitant]
     Active Substance: CLOZAPINE
     Indication: Mental disorder
     Route: 050

REACTIONS (8)
  - Schizophrenia [Not Recovered/Not Resolved]
  - Electric shock sensation [Unknown]
  - Muscle spasms [Unknown]
  - Posture abnormal [Unknown]
  - Balance disorder [Unknown]
  - Hypoaesthesia [Unknown]
  - Hypothyroidism [Unknown]
  - Product dispensing error [Unknown]
